FAERS Safety Report 7672079-5 (Version None)
Quarter: 2011Q3

REPORT INFORMATION
  Report Type: 
  Country: None (occurrence: None)
  Receive Date: 20110809
  Receipt Date: 20110801
  Transmission Date: 20111222
  Serious: Yes (Hospitalization)
  Sender: FDA-Public Use
  Company Number: PHHY2011US11182

PATIENT
  Sex: Female
  Weight: 67.13 kg

DRUGS (6)
  1. METFORMIN HCL [Concomitant]
     Indication: DIABETES MELLITUS
     Dosage: 500 MG, DAILY
     Route: 048
  2. FOLIC ACID [Concomitant]
     Indication: FOLATE DEFICIENCY
     Dosage: 1 MG, DAILY
     Route: 048
  3. EXJADE [Suspect]
     Dosage: 1500 MG, DAILY
     Route: 048
     Dates: start: 20110211
  4. ZOFRAN [Concomitant]
     Indication: NAUSEA
     Dosage: 4 MG, PRN
     Route: 048
  5. ASPIRIN [Concomitant]
     Indication: DEEP VEIN THROMBOSIS
     Dosage: 81 MG, DAILY
     Route: 048
  6. EXJADE [Suspect]
     Indication: MYELODYSPLASTIC SYNDROME
     Dosage: 1500 MG, DAILY
     Route: 048
     Dates: start: 20101001

REACTIONS (14)
  - FUNGAL INFECTION [None]
  - PYREXIA [None]
  - NEUTROPENIA [None]
  - NAUSEA [None]
  - RESPIRATORY TRACT INFECTION [None]
  - MALAISE [None]
  - VOMITING [None]
  - THROMBOCYTOPENIA [None]
  - DYSPNOEA [None]
  - PANCYTOPENIA [None]
  - CELLULITIS [None]
  - ABSCESS [None]
  - PNEUMONIA [None]
  - MUSCULOSKELETAL CHEST PAIN [None]
